FAERS Safety Report 5546363-5 (Version None)
Quarter: 2007Q4

REPORT INFORMATION
  Report Type: 
  Country: None (occurrence: None)
  Receive Date: 20071206
  Receipt Date: 20071206
  Transmission Date: 20080405
  Serious: Yes (Hospitalization)
  Sender: FDA-Public Use
  Company Number: None

PATIENT
  Sex: Female
  Weight: 68.4932 kg

DRUGS (1)
  1. FACTIVE [Suspect]
     Indication: PNEUMONIA
     Dosage: 1 TABLET ONCE A DAY PO
     Route: 048
     Dates: start: 20071125, end: 20071202

REACTIONS (4)
  - DRUG HYPERSENSITIVITY [None]
  - DYSPNOEA [None]
  - RASH MACULAR [None]
  - SKIN BURNING SENSATION [None]
